FAERS Safety Report 9234810 (Version 1)
Quarter: 2013Q2

REPORT INFORMATION
  Report Type: Report from Study
  Country: US (occurrence: US)
  Receive Date: 20130416
  Receipt Date: 20130416
  Transmission Date: 20140414
  Serious: Yes (Hospitalization)
  Sender: FDA-Public Use
  Company Number: US-JNJFOC-20130404709

PATIENT
  Age: 33 Month
  Sex: Male

DRUGS (1)
  1. NUCYNTA ER [Suspect]
     Indication: ACCIDENTAL EXPOSURE TO PRODUCT
     Dosage: 2 TABLETS
     Route: 048

REACTIONS (6)
  - Accidental exposure to product [Unknown]
  - Lethargy [Recovered/Resolved]
  - Myoclonus [Recovered/Resolved]
  - Convulsion [Recovered/Resolved]
  - Muscle spasms [Recovered/Resolved]
  - Miosis [Recovered/Resolved]
